FAERS Safety Report 20404160 (Version 2)
Quarter: 2022Q1

REPORT INFORMATION
  Report Type: Spontaneous
  Country: JP (occurrence: JP)
  Receive Date: 20220131
  Receipt Date: 20220310
  Transmission Date: 20220423
  Serious: Yes (Hospitalization, Other)
  Sender: FDA-Public Use
  Company Number: JP-ASTELLAS-2022JP001495

PATIENT
  Age: 0 Year
  Sex: Female

DRUGS (3)
  1. TACROLIMUS [Suspect]
     Active Substance: TACROLIMUS
     Indication: Immunosuppressant drug therapy
     Route: 064
     Dates: start: 20160825, end: 20161027
  2. TACROLIMUS [Suspect]
     Active Substance: TACROLIMUS
     Route: 064
     Dates: start: 20161027, end: 20190312
  3. TACROLIMUS [Suspect]
     Active Substance: TACROLIMUS
     Route: 064
     Dates: start: 20190312

REACTIONS (3)
  - Anaemia neonatal [Recovering/Resolving]
  - Premature baby [Recovering/Resolving]
  - Low birth weight baby [Recovering/Resolving]

NARRATIVE: CASE EVENT DATE: 20191007
